FAERS Safety Report 12536777 (Version 2)
Quarter: 2016Q3

REPORT INFORMATION
  Report Type: Spontaneous
  Country: FR (occurrence: FR)
  Receive Date: 20160707
  Receipt Date: 20160831
  Transmission Date: 20161109
  Serious: Yes (Hospitalization)
  Sender: FDA-Public Use
  Company Number: FR-BAYER-2016-132843

PATIENT
  Age: 68 Year
  Sex: Female
  Weight: 63 kg

DRUGS (3)
  1. EXFORGE HCT [Concomitant]
     Active Substance: AMLODIPINE BESYLATE\HYDROCHLOROTHIAZIDE\VALSARTAN
     Indication: HYPERTENSION
  2. ASPIRINE PROTECT 100 MG COMPRIM? GASTRO-R?SISTANT [Suspect]
     Active Substance: ASPIRIN
     Indication: ARTERITIS
     Dosage: UNK
     Dates: start: 20150813, end: 20160506
  3. EXFORGE HCT [Concomitant]
     Active Substance: AMLODIPINE BESYLATE\HYDROCHLOROTHIAZIDE\VALSARTAN
     Indication: HYPERTENSION
     Dosage: 1 DF, QD
     Route: 048
     Dates: start: 20150807

REACTIONS (4)
  - Haematemesis [Recovered/Resolved]
  - Gastrointestinal haemorrhage [Recovered/Resolved]
  - Off label use [None]
  - Gastric ulcer [Recovering/Resolving]

NARRATIVE: CASE EVENT DATE: 20160506
